FAERS Safety Report 5080100-6 (Version None)
Quarter: 2006Q3

REPORT INFORMATION
  Report Type: 
  Country: None (occurrence: None)
  Receive Date: 20060810
  Receipt Date: 20060731
  Transmission Date: 20061208
  Serious: Yes (Other)
  Sender: FDA-Public Use
  Company Number: 2005169912

PATIENT
  Sex: Male
  Weight: 3 kg

DRUGS (4)
  1. VIRACEPT [Suspect]
     Indication: HIV TEST POSITIVE
     Dosage: 2500 MG, ORAL
     Route: 048
     Dates: start: 20051018
  2. COMBIVIR [Suspect]
     Indication: HIV TEST POSITIVE
     Dosage: 2 DOSAGE FORM, ORAL
     Route: 048
     Dates: start: 20051018
  3. RETROVIR [Suspect]
     Indication: HIV TEST POSITIVE
     Dosage: 2 MG/KG/H, INTRAVENOUS; SEE IMAGE
     Route: 042
     Dates: start: 20060323, end: 20060323
  4. RETROVIR [Suspect]
     Indication: HIV TEST POSITIVE
     Dosage: 2 MG/KG/H, INTRAVENOUS; SEE IMAGE
     Route: 042
     Dates: start: 20060323, end: 20060323

REACTIONS (4)
  - DRUG EXPOSURE DURING PREGNANCY [None]
  - FALSE POSITIVE LABORATORY RESULT [None]
  - MATERNAL CONDITION AFFECTING FOETUS [None]
  - PILONIDAL CYST CONGENITAL [None]
